FAERS Safety Report 20496231 (Version 1)
Quarter: 2022Q1

REPORT INFORMATION
  Report Type: Spontaneous
  Country: DE (occurrence: DE)
  Receive Date: 20220221
  Receipt Date: 20220221
  Transmission Date: 20220423
  Serious: Yes (Other)
  Sender: FDA-Public Use
  Company Number: DE-NOVARTISPH-NVSC2022DE037752

PATIENT
  Age: 53 Year
  Sex: Male

DRUGS (3)
  1. HEPARIN [Suspect]
     Active Substance: HEPARIN SODIUM
     Indication: Anticoagulant therapy
     Dosage: 5000 IU, (GIVER PRIOR TO SURGERY)
     Route: 065
  2. HEPARIN [Suspect]
     Active Substance: HEPARIN SODIUM
     Dosage: 10000 IU, ELEVATED FROM INITIALLY 5000 IU I.V. TO 10.000 IU (100 IU/KG BODY WEIGHT)
     Route: 065
  3. ASPIRIN [Concomitant]
     Active Substance: ASPIRIN
     Indication: Thrombosis prophylaxis
     Dosage: UNK (LOADING DOSE OF 500 MG OF ASPIRIN AFTER SURGERY AND 100 MG DAILY THEREAFTER)
     Route: 065

REACTIONS (2)
  - Ventricular flutter [Recovered/Resolved]
  - Heparin-induced thrombocytopenia [Recovered/Resolved]
